FAERS Safety Report 6461067-2 (Version None)
Quarter: 2009Q4

REPORT INFORMATION
  Report Type: 
  Country: None (occurrence: None)
  Receive Date: 20091130
  Receipt Date: 20091118
  Transmission Date: 20100525
  Serious: Yes (Death)
  Sender: FDA-Public Use
  Company Number: B0605639B

PATIENT
  Sex: Male
  Weight: 3 kg

DRUGS (2)
  1. LAMICTAL [Suspect]
     Indication: EPILEPSY
     Dosage: 100MG TWICE PER DAY
  2. SPECIAFOLDINE [Suspect]
     Dosage: 5MG PER DAY
     Dates: end: 20050528

REACTIONS (2)
  - DRUG EXPOSURE DURING PREGNANCY [None]
  - UMBILICAL CORD ABNORMALITY [None]
